FAERS Safety Report 18285264 (Version 1)
Quarter: 2020Q3

REPORT INFORMATION
  Report Type: Spontaneous
  Country: US (occurrence: US)
  Receive Date: 20200918
  Receipt Date: 20200918
  Transmission Date: 20201103
  Serious: No
  Sender: FDA-Public Use
  Company Number: US-009507513-2009USA006444

PATIENT

DRUGS (1)
  1. NEXPLANON [Suspect]
     Active Substance: ETONOGESTREL
     Dosage: UNK

REACTIONS (4)
  - Device issue [Not Recovered/Not Resolved]
  - No adverse event [Unknown]
  - Complication of device removal [Not Recovered/Not Resolved]
  - Device deployment issue [Not Recovered/Not Resolved]
